FAERS Safety Report 10599221 (Version 1)
Quarter: 2014Q4

REPORT INFORMATION
  Report Type: Spontaneous
  Country: None (occurrence: None)
  Receive Date: 20141119
  Receipt Date: 20141119
  Transmission Date: 20150529
  Serious: Yes (Hospitalization, Other)
  Sender: FDA-Public Use
  Company Number: IPC201411-000606

PATIENT
  Age: 17 Year
  Sex: Male

DRUGS (1)
  1. METOCLOPRAMIDE HYDROCHLORIDE. [Suspect]
     Active Substance: METOCLOPRAMIDE HYDROCHLORIDE
     Indication: DIARRHOEA INFECTIOUS
     Route: 042

REACTIONS (8)
  - Rhabdomyolysis [None]
  - Circulatory collapse [None]
  - Disseminated intravascular coagulation [None]
  - Carcinoid tumour [None]
  - Pneumonia [None]
  - General physical health deterioration [None]
  - Renal tubular necrosis [None]
  - Gastritis haemorrhagic [None]
